FAERS Safety Report 6389267-0 (Version None)
Quarter: 2009Q4

REPORT INFORMATION
  Report Type: 
  Country: None (occurrence: None)
  Receive Date: 20091006
  Receipt Date: 20090928
  Transmission Date: 20100525
  Serious: Yes (Other)
  Sender: FDA-Public Use
  Company Number: PHHY2009CA37699

PATIENT
  Sex: Male

DRUGS (2)
  1. OCTREOTIDE ACETATE [Suspect]
     Dosage: UNK
     Route: 058
     Dates: start: 20090807
  2. SANDOSTATIN LAR [Suspect]
     Indication: CARCINOID TUMOUR
     Dosage: 30 MG EVERY 4 WEEKS
     Route: 030
     Dates: start: 20090901

REACTIONS (2)
  - BLOOD PRESSURE INCREASED [None]
  - GAIT SPASTIC [None]
